FAERS Safety Report 24379494 (Version 1)
Quarter: 2024Q3

REPORT INFORMATION
  Report Type: Spontaneous
  Country: US (occurrence: None)
  Receive Date: 20240929
  Receipt Date: 20240929
  Transmission Date: 20241017
  Serious: Yes (Other)
  Sender: Public
  Company Number: None

PATIENT
  Age: 73 Year
  Sex: Female
  Weight: 66.6 kg

DRUGS (16)
  1. REPATHA [Suspect]
     Active Substance: EVOLOCUMAB
     Indication: Hypercholesterolaemia
     Dosage: OTHER QUANTITY : 2 INJECTION(S)?OTHER FREQUENCY : EVERY 2 WEEKS?
     Route: 058
     Dates: start: 20240814
  2. DIGOXIN [Concomitant]
     Active Substance: DIGOXIN
  3. METOPROLOL [Concomitant]
     Active Substance: METOPROLOL
  4. METOPROLOL [Concomitant]
     Active Substance: METOPROLOL
  5. REPATHA [Concomitant]
     Active Substance: EVOLOCUMAB
  6. SINGULAIR [Concomitant]
     Active Substance: MONTELUKAST SODIUM
  7. DEVICE [Concomitant]
     Active Substance: DEVICE
  8. allergy injections [Concomitant]
  9. topical skin -- akleif [Concomitant]
  10. Zilxi(minocycline foam) [Concomitant]
  11. b12 [Concomitant]
  12. VITAMIN D NOS [Concomitant]
     Active Substance: CHOLECALCIFEROL\ERGOCALCIFEROL
  13. UNSPECIFIED INGREDIENT [Concomitant]
     Active Substance: UNSPECIFIED INGREDIENT
  14. TYLENOL [Concomitant]
     Active Substance: ACETAMINOPHEN
  15. OMEPRAZOLE [Concomitant]
     Active Substance: OMEPRAZOLE
  16. TOPICAL SKIN MOISTURIZERS [Concomitant]

REACTIONS (9)
  - Headache [None]
  - Pyrexia [None]
  - Flushing [None]
  - Chills [None]
  - Malaise [None]
  - Fatigue [None]
  - Nasopharyngitis [None]
  - Brain fog [None]
  - Bedridden [None]

NARRATIVE: CASE EVENT DATE: 20240927
